FAERS Safety Report 17573082 (Version 1)
Quarter: 2020Q1

REPORT INFORMATION
  Report Type: Report from Study
  Country: US (occurrence: US)
  Receive Date: 20200323
  Receipt Date: 20200323
  Transmission Date: 20200409
  Serious: Yes (Death, Hospitalization)
  Sender: FDA-Public Use
  Company Number: US-ACTELION-A-NJ2019-198148

PATIENT
  Sex: Female
  Weight: 53.52 kg

DRUGS (3)
  1. AMLODIPINE [Concomitant]
     Active Substance: AMLODIPINE BESYLATE
  2. OPSUMIT [Suspect]
     Active Substance: MACITENTAN
     Indication: PULMONARY HYPERTENSION
     Dosage: 10 MG, QD
     Route: 048
  3. TADALAFIL. [Concomitant]
     Active Substance: TADALAFIL

REACTIONS (8)
  - Dyspnoea [Unknown]
  - Oedema peripheral [Unknown]
  - Sneezing [Unknown]
  - Seasonal allergy [Unknown]
  - Oxygen saturation decreased [Unknown]
  - Death [Fatal]
  - Headache [Not Recovered/Not Resolved]
  - Product dose omission [Unknown]
